FAERS Safety Report 11763869 (Version 1)
Quarter: 2015Q4

REPORT INFORMATION
  Report Type: Spontaneous
  Country: MX (occurrence: MX)
  Receive Date: 20151121
  Receipt Date: 20151121
  Transmission Date: 20160304
  Serious: Yes (Life-Threatening, Hospitalization)
  Sender: FDA-Public Use
  Company Number: MX-009507513-1510MEX011558

PATIENT
  Age: 42 Year
  Sex: Female

DRUGS (3)
  1. PEGTRON [Suspect]
     Active Substance: PEGINTERFERON ALFA-2B
     Indication: MALIGNANT MELANOMA
     Dosage: 100 MICROGRAM, QW
     Route: 058
     Dates: start: 20150601, end: 20150918
  2. PEGTRON [Suspect]
     Active Substance: PEGINTERFERON ALFA-2B
     Indication: ADJUVANT THERAPY
  3. ACETAMINOPHEN. [Concomitant]
     Active Substance: ACETAMINOPHEN
     Indication: PAIN
     Dosage: UNK
     Route: 048

REACTIONS (1)
  - Drug-induced liver injury [Recovered/Resolved]

NARRATIVE: CASE EVENT DATE: 20150918
